FAERS Safety Report 5312900-9 (Version None)
Quarter: 2007Q2

REPORT INFORMATION
  Report Type: 
  Country: None (occurrence: None)
  Receive Date: 20070430
  Receipt Date: 20070418
  Transmission Date: 20071010
  Serious: Yes (Other)
  Sender: FDA-Public Use
  Company Number: US-PFIZER INC-2006030416

PATIENT
  Sex: Female
  Weight: 102.1 kg

DRUGS (3)
  1. BEXTRA [Suspect]
     Indication: PAIN
     Dates: start: 20041001, end: 20041014
  2. SYNTHROID [Concomitant]
     Route: 065
  3. XANAX [Concomitant]
     Route: 065

REACTIONS (2)
  - MYOCARDIAL INFARCTION [None]
  - STEVENS-JOHNSON SYNDROME [None]
